FAERS Safety Report 21405225 (Version 2)
Quarter: 2023Q2

REPORT INFORMATION
  Report Type: Report from Study
  Country: US (occurrence: US)
  Receive Date: 20221004
  Receipt Date: 20230626
  Transmission Date: 20230721
  Serious: No
  Sender: FDA-Public Use
  Company Number: US-ABBVIE-22K-163-4487866-00

PATIENT
  Sex: Male

DRUGS (38)
  1. VENCLEXTA [Suspect]
     Active Substance: VENETOCLAX
     Indication: Myelodysplastic syndrome with excess blasts
     Dosage: BREAKFAST FOR 14 DAYS AND 14 DAYS OFF. WITH MEAL, WATER SAME TIME  EACH DAY?STRENGTH: 100 MG
     Route: 048
  2. VENCLEXTA [Suspect]
     Active Substance: VENETOCLAX
     Indication: Myelodysplastic syndrome with excess blasts
     Dosage: WITH BREAKFAST FOR 14 DAYS AND 14 DAYS OFF. TAKE WITH MEAL AND WATER THE SAME TIME  EACH DAY STRE...
     Route: 048
  3. TYLENOL [Concomitant]
     Active Substance: ACETAMINOPHEN
     Indication: Arthralgia
     Dosage: STRENGTH: 650 MG
     Route: 048
  4. ZOVIRAX [Concomitant]
     Active Substance: ACYCLOVIR
     Indication: Product used for unknown indication
     Dosage: BID, STRENGTH: 400 MG
     Route: 048
  5. NORVASC [Concomitant]
     Active Substance: AMLODIPINE BESYLATE
     Indication: Product used for unknown indication
     Dosage: STRENGTH: 5 MG
     Route: 048
  6. LIPITOR [Concomitant]
     Active Substance: ATORVASTATIN CALCIUM
     Indication: Product used for unknown indication
     Dosage: STRENGTH: 40 MG
     Route: 048
  7. MEPRON [Concomitant]
     Active Substance: ATOVAQUONE
     Indication: Product used for unknown indication
     Dosage: 1500 MILLIGRAM, STRENGTH: 750 MG
     Route: 065
  8. ENTOCORT EC [Concomitant]
     Active Substance: BUDESONIDE
     Indication: Product used for unknown indication
     Dosage: STRENGTH: 3 MG
     Route: 048
  9. CALCIUM CHLORIDE\SODIUM CHLORIDE\SODIUM PHOSPHATE, DIBASIC, ANHYDROUS\ [Concomitant]
     Active Substance: CALCIUM CHLORIDE\SODIUM CHLORIDE\SODIUM PHOSPHATE, DIBASIC, ANHYDROUS\SODIUM PHOSPHATE, MONOBASIC, A
     Indication: Product used for unknown indication
     Dosage: MIX 15 ML VAIL WITH BLUE 15 ML VIAL FOR TOTAL 30ML SWISH AND SPIT UPTO 10 MIN A DAY
     Route: 065
  10. COREG [Concomitant]
     Active Substance: CARVEDILOL
     Indication: Product used for unknown indication
     Dosage: 12.5 MG TWICE A DAY, STRENGTH: 6.25 MG
     Route: 048
  11. LOMOTIL [Concomitant]
     Active Substance: ATROPINE SULFATE\DIPHENOXYLATE HYDROCHLORIDE
     Indication: Diarrhoea
     Dosage: FORM STRENGTH: 2.5-0.025 MG TABLET, TAKE 2 TABLETS BY MOUTH 4 TIMES A DAY
     Route: 048
  12. FERROUS SULFATE [Concomitant]
     Active Substance: FERROUS SULFATE
     Indication: Product used for unknown indication
     Dosage: TIME INTERVAL: 0.33333333 DAYS: 3 TIMES A DAY WITH MEALS, STRENGTH: 325 MG
     Route: 048
  13. GENGRAF [Concomitant]
     Active Substance: CYCLOSPORINE
     Indication: Product used for unknown indication
     Dosage: TAKE 75MG BY MOUTH AS DIRECTED 75MG IN AM AND 50MG AT PM -CYCLOSPORINE?STRENGTH: 25 MG
     Route: 048
  14. ADVIL [Concomitant]
     Active Substance: IBUPROFEN
     Indication: Pyrexia
     Dosage: FORM STRENGTH: 600 MG
     Route: 048
  15. HUMALOG [Concomitant]
     Active Substance: INSULIN LISPRO
     Indication: Product used for unknown indication
     Dosage: TIME INTERVAL: 0.33333333 DAYS: 100 UNITS/ML INSULIN PEN
     Route: 058
  16. NIZORAL [Concomitant]
     Active Substance: KETOCONAZOLE
     Indication: Product used for unknown indication
     Dosage: 2% SHAMPOO, APPLY TO AFFECTED AREA ON EVERY MONDAY AND THURSDAY
     Route: 061
  17. LIDOCAINE VISCOUS [Concomitant]
     Active Substance: LIDOCAINE HYDROCHLORIDE
     Indication: Pain
     Dosage: 2% MUCOUS MEMBRANE SOLUTION?10-15ML FOUR TIMES A DAY
     Route: 065
  18. ZOFRAN [Concomitant]
     Active Substance: ONDANSETRON HYDROCHLORIDE
     Indication: Product used for unknown indication
     Dosage: STRENGTH : 8 MG
     Route: 048
  19. PROTONIX [Concomitant]
     Active Substance: PANTOPRAZOLE SODIUM
     Indication: Product used for unknown indication
     Dosage: 40 MG TABLET E.C
     Route: 048
  20. NOXAFIL [Concomitant]
     Active Substance: POSACONAZOLE
     Indication: Product used for unknown indication
     Dosage: 100 MG TABLET E.C (WITH BREAKFAST)
     Route: 048
  21. PREVYMIS [Concomitant]
     Active Substance: LETERMOVIR
     Indication: Product used for unknown indication
     Dosage: AT BEDTIME, STRENGTH: 240 MG
     Route: 048
  22. COMPAZINE [Concomitant]
     Active Substance: PROCHLORPERAZINE MALEATE
     Indication: Product used for unknown indication
     Dosage: STRENGTH: 10 MG
     Route: 048
  23. ZOLOFT [Concomitant]
     Active Substance: SERTRALINE HYDROCHLORIDE
     Indication: Product used for unknown indication
     Dosage: STRENGTH: 50 MG
     Route: 048
  24. REVATIO [Concomitant]
     Active Substance: SILDENAFIL CITRATE
     Indication: Product used for unknown indication
     Dosage: TAKE 1 TO 5 TABLETS NEEDED FOR PRIOR TO SEXUAL INTERCOURSE, STRENGTH: 20 MG
     Route: 048
  25. MAXZIDE [Concomitant]
     Active Substance: HYDROCHLOROTHIAZIDE\TRIAMTERENE
     Indication: Product used for unknown indication
     Dosage: STRENGTH: 25 MG
     Route: 048
  26. ASPIRIN [Concomitant]
     Active Substance: ASPIRIN
     Indication: Product used for unknown indication
     Dosage: STRENGTH: 81 MG
     Route: 048
  27. FOLVITE [Concomitant]
     Active Substance: FOLIC ACID
     Indication: Product used for unknown indication
     Dosage: STRENGTH: 1 MG
     Route: 048
  28. LASIX [Concomitant]
     Active Substance: FUROSEMIDE
     Indication: Oedema peripheral
     Dosage: STRENGTH: 20 MG
     Route: 048
  29. AMARYL [Concomitant]
     Active Substance: GLIMEPIRIDE
     Indication: Product used for unknown indication
     Dosage: 2 TIMES A DAY WITH MEALS STRENGTH: 4 MG
     Route: 048
  30. PRINIVIL [Concomitant]
     Active Substance: LISINOPRIL
     Indication: Product used for unknown indication
     Dosage: 20 MILLIGRAM, STRENGTH: 40 MG
     Route: 048
  31. NORCO [Concomitant]
     Active Substance: ACETAMINOPHEN\HYDROCODONE BITARTRATE
     Indication: Pain
     Dosage: 5-325 MG TABLET
     Route: 048
  32. TRULICITY [Concomitant]
     Active Substance: DULAGLUTIDE
     Indication: Product used for unknown indication
     Dosage: DO NOT MIX WITH INSULIN IF ALSO ORDERED. ROTATE INJECTION SITE?? (1.5/0.5ML PEN INJECTOR)
     Route: 058
  33. DELTASONE [Concomitant]
     Active Substance: PREDNISONE
     Indication: Product used for unknown indication
     Dosage: TAKE 5-20 MG, STRENGTH: 5 MG
     Route: 048
  34. VITAMINS [Concomitant]
     Active Substance: VITAMINS
     Indication: Product used for unknown indication
     Dosage: MORNING
     Route: 048
  35. METFORMIN [Concomitant]
     Active Substance: METFORMIN HYDROCHLORIDE
     Indication: Product used for unknown indication
     Route: 048
  36. GLUCOPHAGE [Concomitant]
     Active Substance: METFORMIN HYDROCHLORIDE
     Indication: Product used for unknown indication
     Dosage: STRENGTH: 1000 MG
     Route: 048
  37. ZESTRIL [Concomitant]
     Active Substance: LISINOPRIL
     Indication: Product used for unknown indication
     Dosage: 20 MILLIGRAM, STRENGTH: 40 MG
     Route: 048
  38. LORCET [Concomitant]
     Active Substance: ACETAMINOPHEN\HYDROCODONE BITARTRATE
     Indication: Pain
     Dosage: 5-325 MG
     Route: 048

REACTIONS (2)
  - Off label use [Unknown]
  - Viral infection [Unknown]
